FAERS Safety Report 22199324 (Version 1)
Quarter: 2023Q2

REPORT INFORMATION
  Report Type: Spontaneous
  Country: GB (occurrence: GB)
  Receive Date: 20230411
  Receipt Date: 20230411
  Transmission Date: 20230722
  Serious: No
  Sender: FDA-Public Use
  Company Number: GB-MHRA-MED-202202160952065890-1SIUS

PATIENT

DRUGS (1)
  1. QUETIAPINE FUMARATE [Suspect]
     Active Substance: QUETIAPINE FUMARATE
     Indication: Off label use
     Dosage: 25 MILLIGRAM
     Route: 065
     Dates: end: 20220210

REACTIONS (7)
  - Rash [Recovered/Resolved]
  - Pyrexia [Recovered/Resolved]
  - Oropharyngeal pain [Recovered/Resolved]
  - Pharyngeal swelling [Recovered/Resolved]
  - Glossodynia [Recovered/Resolved]
  - Dyspnoea [Recovered/Resolved]
  - Rhinorrhoea [Recovered/Resolved]

NARRATIVE: CASE EVENT DATE: 20220210
